FAERS Safety Report 12899236 (Version 1)
Quarter: 2016Q4

REPORT INFORMATION
  Report Type: Spontaneous
  Country: US (occurrence: US)
  Receive Date: 20161029
  Receipt Date: 20161029
  Transmission Date: 20170207
  Serious: Yes (Hospitalization)
  Sender: FDA-Public Use
  Company Number: None

PATIENT
  Age: 17 Year
  Sex: Male
  Weight: 67.4 kg

DRUGS (6)
  1. DAUNORUBICIN [Suspect]
     Active Substance: DAUNORUBICIN
     Dates: end: 20161020
  2. ONCASPAR [Suspect]
     Active Substance: PEGASPARGASE
     Dates: end: 20161002
  3. METHOTREXATE. [Suspect]
     Active Substance: METHOTREXATE
     Dates: end: 20161006
  4. PREDNISONE. [Suspect]
     Active Substance: PREDNISONE
     Dates: end: 20161025
  5. VINCRISTINE SULFATE. [Suspect]
     Active Substance: VINCRISTINE SULFATE
     Dates: end: 20161020
  6. CYTARABINE. [Suspect]
     Active Substance: CYTARABINE
     Dates: end: 20160929

REACTIONS (4)
  - Pancytopenia [None]
  - Colitis [None]
  - Abdominal pain [None]
  - Diarrhoea haemorrhagic [None]

NARRATIVE: CASE EVENT DATE: 20161026
